FAERS Safety Report 23770745 (Version 2)
Quarter: 2024Q2

REPORT INFORMATION
  Report Type: Report from Study
  Country: US (occurrence: US)
  Receive Date: 20240422
  Receipt Date: 20240426
  Transmission Date: 20240716
  Serious: Yes (Hospitalization, Other)
  Sender: FDA-Public Use
  Company Number: US-ABBVIE-5726015

PATIENT
  Age: 61 Year
  Sex: Male
  Weight: 176.9 kg

DRUGS (1)
  1. IMBRUVICA [Suspect]
     Active Substance: IBRUTINIB
     Indication: Product used for unknown indication
     Dosage: FORM STRENGTH: 420MG
     Route: 048
     Dates: start: 20220304

REACTIONS (4)
  - Oedema [Recovered/Resolved]
  - Malaise [Recovered/Resolved]
  - COVID-19 [Not Recovered/Not Resolved]
  - Blood uric acid increased [Recovered/Resolved]

NARRATIVE: CASE EVENT DATE: 20220301
